FAERS Safety Report 6908150-2 (Version None)
Quarter: 2010Q3

REPORT INFORMATION
  Report Type: 
  Country: None (occurrence: None)
  Receive Date: 20100716
  Receipt Date: 20090713
  Transmission Date: 20110219
  Serious: Yes (Other)
  Sender: FDA-Public Use
  Company Number: 2009235058

PATIENT
  Age: 83 Year
  Sex: Female
  Weight: 73.9 kg

DRUGS (8)
  1. CELEBREX [Suspect]
     Indication: PAIN
     Dosage: 100 MG, 1X/DAY, ORAL
     Route: 048
     Dates: start: 20020101, end: 20040101
  2. SYNTHROID [Concomitant]
  3. BETAPACE [Concomitant]
  4. ASCORBIC ACID [Concomitant]
  5. CALCIUM (CALCIUM) [Concomitant]
  6. ALTACE [Concomitant]
  7. MAGNESIUM (MAGNESIUM) [Concomitant]
  8. ASPIRIN [Concomitant]

REACTIONS (2)
  - CARDIAC FAILURE CONGESTIVE [None]
  - RENAL INJURY [None]
